FAERS Safety Report 6285546-6 (Version None)
Quarter: 2009Q3

REPORT INFORMATION
  Report Type: 
  Country: None (occurrence: None)
  Receive Date: 20090727
  Receipt Date: 20090713
  Transmission Date: 20100115
  Serious: Yes (Other)
  Sender: FDA-Public Use
  Company Number: GB-MYLANLABS-2007S1012833

PATIENT
  Age: 69 Year
  Sex: Female

DRUGS (2)
  1. TAMOXIFEN CITRATE [Suspect]
     Indication: BREAST CANCER
     Route: 048
  2. TIBOLONE [Suspect]
     Indication: MENOPAUSAL SYMPTOMS

REACTIONS (2)
  - VAGINAL HAEMORRHAGE [None]
  - VAGINAL POLYP [None]
